FAERS Safety Report 24742989 (Version 1)
Quarter: 2024Q4

REPORT INFORMATION
  Report Type: Spontaneous
  Country: US (occurrence: US)
  Receive Date: 20241217
  Receipt Date: 20241217
  Transmission Date: 20250114
  Serious: No
  Sender: BRISTOL-MYERS SQUIBB COMPANY
  Company Number: US-BRISTOL-MYERS SQUIBB COMPANY-2024-195598

PATIENT
  Age: 52 Year
  Sex: Female
  Weight: 79.38 kg

DRUGS (1)
  1. POMALYST [Suspect]
     Active Substance: POMALIDOMIDE
     Indication: Plasma cell myeloma
     Dosage: FREQUENCY: DAILY FOR 3 WEEKS ON, THEN 1 WEEK OFF
     Route: 048

REACTIONS (1)
  - Laboratory test abnormal [Unknown]
